FAERS Safety Report 24279681 (Version 1)
Quarter: 2024Q3

REPORT INFORMATION
  Report Type: Spontaneous
  Country: NL (occurrence: NL)
  Receive Date: 20240904
  Receipt Date: 20240904
  Transmission Date: 20241016
  Serious: Yes (Hospitalization, Other)
  Sender: GLAXOSMITHKLINE
  Company Number: None

PATIENT

DRUGS (2)
  1. LAMOTRIGINE [Suspect]
     Active Substance: LAMOTRIGINE
     Indication: Epilepsy
     Dosage: 25 MG, 6D; 5 TIMES A DAY 1 PIECE
     Route: 065
     Dates: start: 20240805, end: 20240813
  2. KEPPRA [Concomitant]
     Active Substance: LEVETIRACETAM
     Indication: Epilepsy
     Dosage: 500 MG, BID; 2 TIMES A DAY 1 PIECE
     Route: 065
     Dates: start: 20240805

REACTIONS (3)
  - Drug reaction with eosinophilia and systemic symptoms [Recovering/Resolving]
  - Faeces soft [Unknown]
  - Medication error [Unknown]

NARRATIVE: CASE EVENT DATE: 20240801
